FAERS Safety Report 8778336 (Version 3)
Quarter: 2013Q3

REPORT INFORMATION
  Report Type: Report from Study
  Country: JP (occurrence: JP)
  Receive Date: 20120912
  Receipt Date: 20130910
  Transmission Date: 20140515
  Serious: Yes (Other)
  Sender: FDA-Public Use
  Company Number: JP-VERTEX PHARMACEUTICAL INC.-AE-2012-005600

PATIENT
  Age: 54 Year
  Sex: Male

DRUGS (22)
  1. VX-950 (TELAPREVIR) [Suspect]
     Indication: CHRONIC HEPATITIS C
     Dosage: 2250 MG, QD
     Route: 048
     Dates: start: 20120223, end: 20120515
  2. REBETOL [Suspect]
     Indication: CHRONIC HEPATITIS C
     Dosage: 1000 MG, QD
     Route: 048
     Dates: start: 20120223, end: 20120313
  3. REBETOL [Suspect]
     Dosage: 600 MG, QD
     Route: 048
     Dates: start: 20120314, end: 20120619
  4. REBETOL [Suspect]
     Dosage: 800 MG, QD
     Route: 048
     Dates: start: 20120620, end: 20120703
  5. REBETOL [Suspect]
     Dosage: 1000 MG, QD
     Route: 048
     Dates: start: 20120704, end: 20120808
  6. PEGINTRON [Suspect]
     Indication: CHRONIC HEPATITIS C
     Dosage: 1.5 ?G/KG, QW
     Route: 058
     Dates: start: 20120223, end: 20120229
  7. PEGINTRON [Suspect]
     Dosage: 0.75 ?G/KG, QW
     Route: 058
     Dates: start: 20120301, end: 20120306
  8. PEGINTRON [Suspect]
     Dosage: 1.5 ?G/KG, QW
     Route: 058
     Dates: start: 20120307, end: 20120320
  9. PEGINTRON [Suspect]
     Dosage: 100 ?G/KG, QW
     Route: 058
     Dates: start: 20120321, end: 20120327
  10. PEGINTRON [Suspect]
     Dosage: 1.5 ?G/KG, QW
     Route: 058
     Dates: start: 20120328, end: 20120424
  11. PEGINTRON [Suspect]
     Dosage: 0.75 ?G/KG, QW
     Route: 058
     Dates: start: 20120425, end: 20120508
  12. PEGINTRON [Suspect]
     Dosage: 1.5 ?G/KG, QW
     Route: 058
     Dates: start: 20120509, end: 20120522
  13. PEGINTRON [Suspect]
     Dosage: 0.75 ?G/KG, QW
     Route: 058
     Dates: start: 20120523, end: 20120626
  14. PEGINTRON [Suspect]
     Dosage: 1.5 ?G/KG, QW
     Route: 058
     Dates: start: 20120627, end: 20120710
  15. PEGINTRON [Suspect]
     Dosage: 0.75 ?G/KG, QW
     Route: 058
     Dates: start: 20120719, end: 20120808
  16. BAYASPIRIN [Concomitant]
     Dosage: 100 MG, QD
     Route: 048
  17. PARIET [Concomitant]
     Dosage: 10 MG, QD
     Route: 048
  18. SIGMART [Concomitant]
     Dosage: 15 MG, QD
     Route: 048
  19. BEZATOL SR [Concomitant]
     Dosage: 400 MG, QD
     Route: 048
  20. JANUVIA [Concomitant]
     Dosage: 50 MG, QD
     Route: 048
  21. METGLUCO [Concomitant]
     Dosage: 1000 MG, QD
     Route: 048
  22. CALONAL [Concomitant]
     Dosage: 400 MG, PRN
     Route: 048
     Dates: start: 20120223, end: 20120808

REACTIONS (2)
  - Neutrophil count decreased [Recovered/Resolved]
  - Neutrophil count decreased [Recovered/Resolved]
